FAERS Safety Report 8198564-8 (Version None)
Quarter: 2012Q1

REPORT INFORMATION
  Report Type: 
  Country: None (occurrence: None)
  Receive Date: 20120309
  Receipt Date: 20120309
  Transmission Date: 20120608
  Serious: Yes (Death)
  Sender: FDA-Public Use
  Company Number: PHHY2012AU017344

PATIENT
  Sex: Female

DRUGS (5)
  1. HEPARIN [Concomitant]
     Indication: THROMBOSIS PROPHYLAXIS
     Dosage: 5000 U, BID
  2. CEFTRIAXON [Concomitant]
     Indication: PNEUMONIA
     Dosage: 1 G, DAILY
     Route: 042
     Dates: start: 20120224, end: 20120228
  3. CLOZARIL [Suspect]
     Dosage: 400 MG
     Dates: start: 20010801, end: 20120228
  4. AZITHROMYCIN [Concomitant]
     Indication: PNEUMONIA
     Dosage: 500 MG DAILY
     Route: 042
     Dates: start: 20120224, end: 20120228
  5. PANTOPRAZOLE [Concomitant]
     Indication: PNEUMONIA
     Dosage: 400 MG, DAILY
     Route: 042
     Dates: start: 20120224, end: 20120228

REACTIONS (2)
  - PNEUMONIA [None]
  - LUNG CANCER METASTATIC [None]
